FAERS Safety Report 18473051 (Version 1)
Quarter: 2020Q4

REPORT INFORMATION
  Report Type: Spontaneous
  Country: US (occurrence: US)
  Receive Date: 20201104
  Receipt Date: 20201104
  Transmission Date: 20210114
  Serious: No
  Sender: FDA-Public Use
  Company Number: None

PATIENT
  Age: 82 Year
  Sex: Male
  Weight: 114 kg

DRUGS (1)
  1. SEMAGLUTIDE (SEMAGLUTIDE 0.5MG/0.375ML INJ, SOLN, PEN 1.5ML) [Suspect]
     Active Substance: SEMAGLUTIDE
     Route: 058
     Dates: start: 20200109, end: 20200313

REACTIONS (6)
  - Gastrointestinal disorder [None]
  - Nausea [None]
  - Vomiting [None]
  - Constipation [None]
  - Drug intolerance [None]
  - Diarrhoea [None]

NARRATIVE: CASE EVENT DATE: 20200313
